FAERS Safety Report 9624826 (Version 3)
Quarter: 2014Q1

REPORT INFORMATION
  Report Type: Report from Study
  Country: IT (occurrence: IT)
  Receive Date: 20131015
  Receipt Date: 20140211
  Transmission Date: 20141002
  Serious: Yes (Hospitalization)
  Sender: FDA-Public Use
  Company Number: IT-EXELIXIS-XL18413003354

PATIENT
  Age: 74 Year
  Sex: Male
  Weight: 95 kg

DRUGS (18)
  1. XL184 [Suspect]
     Indication: PROSTATE CANCER
     Dosage: 60 MG, QD
     Route: 048
     Dates: start: 20130802, end: 20130913
  2. XL184 [Suspect]
     Dosage: 40 MG, QD
     Route: 048
     Dates: start: 20131001, end: 20131006
  3. XL184 [Suspect]
     Dosage: 40 MG, QD
     Route: 048
     Dates: start: 20131023
  4. XL184 [Suspect]
     Indication: PROSTATE CANCER
     Dosage: 5 MG, BID
     Route: 048
     Dates: start: 20130802, end: 20130902
  5. XL184 [Suspect]
     Dosage: 5 MG, BID
     Route: 048
     Dates: start: 20131001, end: 20131006
  6. XL184 [Suspect]
     Dosage: 5 MG, BID
     Route: 048
     Dates: start: 20131023
  7. PROZAC [Concomitant]
  8. ROCALTROL [Concomitant]
  9. LYRICA [Concomitant]
  10. FULCROSUPRA [Concomitant]
  11. PANTOPRAZOLO [Concomitant]
  12. NEBILOX [Concomitant]
  13. ACCUPRIN [Concomitant]
  14. TRANSTEC [Concomitant]
  15. SERACTIL [Concomitant]
  16. HUMALOG [Concomitant]
  17. LEVEMIR [Concomitant]
  18. CLEXANE [Concomitant]

REACTIONS (1)
  - Erysipelas [Recovered/Resolved]
